FAERS Safety Report 16459534 (Version 1)
Quarter: 2019Q2

REPORT INFORMATION
  Report Type: Spontaneous
  Country: US (occurrence: US)
  Receive Date: 20190620
  Receipt Date: 20190620
  Transmission Date: 20190711
  Serious: No
  Sender: FDA-Public Use
  Company Number: US-TEVA-2019-US-1063177

PATIENT
  Sex: Female

DRUGS (2)
  1. PREDNISONE. [Suspect]
     Active Substance: PREDNISONE
     Indication: ASTHMA
     Dosage: 40 MILLIGRAM DAILY;
     Dates: start: 20190406
  2. PREDNISONE. [Suspect]
     Active Substance: PREDNISONE
     Indication: COUGH

REACTIONS (5)
  - Somnolence [Unknown]
  - Drug ineffective [Unknown]
  - Cough [Unknown]
  - Blood glucose decreased [Unknown]
  - Product use in unapproved indication [Unknown]
